FAERS Safety Report 24229041 (Version 4)
Quarter: 2025Q1

REPORT INFORMATION
  Report Type: Report from Study
  Country: CA (occurrence: CA)
  Receive Date: 20240820
  Receipt Date: 20250205
  Transmission Date: 20250409
  Serious: Yes (Hospitalization, Other)
  Sender: TAKEDA
  Company Number: CA-TAKEDA-2024TUS081501

PATIENT
  Age: 62 Year
  Sex: Male
  Weight: 65 kg

DRUGS (4)
  1. VEDOLIZUMAB [Suspect]
     Active Substance: VEDOLIZUMAB
     Indication: Crohn^s disease
  2. VEDOLIZUMAB [Suspect]
     Active Substance: VEDOLIZUMAB
     Dosage: 300 MILLIGRAM, Q4WEEKS
     Dates: start: 20240719
  3. VEDOLIZUMAB [Suspect]
     Active Substance: VEDOLIZUMAB
     Dosage: 300 MILLIGRAM, Q4WEEKS
  4. VEDOLIZUMAB [Suspect]
     Active Substance: VEDOLIZUMAB
     Dosage: 300 MILLIGRAM, Q4WEEKS

REACTIONS (25)
  - Nephrolithiasis [Unknown]
  - Crohn^s disease [Unknown]
  - Kidney infection [Unknown]
  - Hepatic infection [Unknown]
  - Hydronephrosis [Unknown]
  - Myocardial infarction [Unknown]
  - Osteonecrosis [Unknown]
  - Viral infection [Unknown]
  - Procedural pain [Not Recovered/Not Resolved]
  - Gastrointestinal infection [Unknown]
  - Pallor [Unknown]
  - Asthenia [Unknown]
  - Blood test abnormal [Unknown]
  - Off label use [Unknown]
  - Weight decreased [Unknown]
  - Drug ineffective [Unknown]
  - Aortic dilatation [Unknown]
  - Aortic aneurysm [Unknown]
  - Bundle branch block left [Unknown]
  - Feeling hot [Unknown]
  - Abdominal pain [Unknown]
  - Vomiting [Unknown]
  - Constipation [Unknown]
  - Fatigue [Unknown]
  - Nausea [Recovering/Resolving]

NARRATIVE: CASE EVENT DATE: 20240719
